FAERS Safety Report 15967515 (Version 1)
Quarter: 2019Q1

REPORT INFORMATION
  Report Type: Spontaneous
  Country: US (occurrence: US)
  Receive Date: 20190215
  Receipt Date: 20190215
  Transmission Date: 20190418
  Serious: Yes (Hospitalization, Other)
  Sender: FDA-Public Use
  Company Number: None

PATIENT
  Age: 15 Year
  Sex: Female
  Weight: 58.05 kg

DRUGS (4)
  1. IRON [Concomitant]
     Active Substance: IRON
  2. VENLAFAXINE 37.5MG CAPSULES [Suspect]
     Active Substance: VENLAFAXINE HYDROCHLORIDE
     Indication: DEPRESSION
     Dosage: ?          QUANTITY:1 CAPSULE(S);?
     Route: 048
     Dates: start: 20190128, end: 20190207
  3. VENLAFAXINE 37.5MG CAPSULES [Suspect]
     Active Substance: VENLAFAXINE HYDROCHLORIDE
     Indication: ANXIETY
     Dosage: ?          QUANTITY:1 CAPSULE(S);?
     Route: 048
     Dates: start: 20190128, end: 20190207
  4. CENTRUM MULTIVITAMIN [Concomitant]

REACTIONS (16)
  - Constipation [None]
  - Abnormal dreams [None]
  - Eyeball avulsion [None]
  - Hallucination [None]
  - Hyperhidrosis [None]
  - Nightmare [None]
  - Lethargy [None]
  - Nausea [None]
  - Diarrhoea [None]
  - Insomnia [None]
  - Anxiety [None]
  - Dizziness [None]
  - Headache [None]
  - Heart rate increased [None]
  - Myalgia [None]
  - Vomiting [None]

NARRATIVE: CASE EVENT DATE: 20190129
